FAERS Safety Report 12282167 (Version 1)
Quarter: 2016Q2

REPORT INFORMATION
  Report Type: Spontaneous
  Country: US (occurrence: None)
  Receive Date: 20160418
  Receipt Date: 20160418
  Transmission Date: 20160815
  Serious: Yes (Death)
  Sender: FDA-Public Use
  Company Number: None

PATIENT
  Age: 69 Year
  Sex: Male
  Weight: 79.38 kg

DRUGS (4)
  1. MUCINEX [Suspect]
     Active Substance: GUAIFENESIN
     Indication: OROPHARYNGEAL PAIN
     Route: 048
     Dates: start: 20160404, end: 20160408
  2. MUCINEX [Suspect]
     Active Substance: GUAIFENESIN
     Indication: NASOPHARYNGITIS
     Route: 048
     Dates: start: 20160404, end: 20160408
  3. MUCINEX [Suspect]
     Active Substance: GUAIFENESIN
     Indication: COUGH
     Route: 048
     Dates: start: 20160404, end: 20160408
  4. MUCINEX [Suspect]
     Active Substance: GUAIFENESIN
     Indication: UPPER RESPIRATORY TRACT CONGESTION
     Route: 048
     Dates: start: 20160404, end: 20160408

REACTIONS (1)
  - Myocardial infarction [None]

NARRATIVE: CASE EVENT DATE: 20160409
